FAERS Safety Report 7134057-4 (Version None)
Quarter: 2010Q4

REPORT INFORMATION
  Report Type: 
  Country: None (occurrence: None)
  Receive Date: 20101203
  Receipt Date: 20101126
  Transmission Date: 20110411
  Serious: Yes (Hospitalization)
  Sender: FDA-Public Use
  Company Number: IN-BRISTOL-MYERS SQUIBB COMPANY-15399603

PATIENT
  Age: 10 Year
  Sex: Male

DRUGS (5)
  1. STREPTOMYCIN [Suspect]
     Indication: MENINGITIS TUBERCULOUS
     Route: 030
  2. PHENYTOIN [Suspect]
     Dosage: 5MG/KG/D DIV THREE DOSES
     Route: 048
  3. ISONIAZID [Suspect]
     Indication: TUBERCULOSIS
     Route: 048
  4. RIFAMPICIN [Suspect]
     Indication: TUBERCULOSIS
     Route: 048
  5. PYRAZINAMIDE [Suspect]
     Indication: TUBERCULOSIS
     Route: 048

REACTIONS (1)
  - OPTIC NEURITIS [None]
